FAERS Safety Report 7252061-2 (Version None)
Quarter: 2011Q1

REPORT INFORMATION
  Report Type: 
  Country: None (occurrence: None)
  Receive Date: 20110128
  Receipt Date: 20100427
  Transmission Date: 20110831
  Serious: No
  Sender: FDA-Public Use
  Company Number: US-ABBOTT-10P-163-0641712-00

PATIENT
  Sex: Male
  Weight: 74.91 kg

DRUGS (3)
  1. HUMIRA [Suspect]
     Indication: CROHN'S DISEASE
     Dates: start: 20090801
  2. LEXAPRO [Concomitant]
     Indication: SOCIAL PHOBIA
     Dates: end: 20091201
  3. NEXIUM [Concomitant]
     Indication: CROHN'S DISEASE
     Dosage: DAILY

REACTIONS (3)
  - ANXIETY [None]
  - SELF-INJURIOUS IDEATION [None]
  - INSOMNIA [None]
